FAERS Safety Report 23847298 (Version 3)
Quarter: 2024Q3

REPORT INFORMATION
  Report Type: Spontaneous
  Country: US (occurrence: None)
  Receive Date: 20240513
  Receipt Date: 20240731
  Transmission Date: 20241016
  Serious: No
  Sender: ASTRAZENECA
  Company Number: 2024A105927

PATIENT
  Sex: Male

DRUGS (2)
  1. BYDUREON BCISE [Suspect]
     Active Substance: EXENATIDE
     Route: 058
  2. HUMIRA [Concomitant]
     Active Substance: ADALIMUMAB

REACTIONS (8)
  - Vertigo [Unknown]
  - Balance disorder [Unknown]
  - Injection site haemorrhage [Unknown]
  - Dizziness [Unknown]
  - Incorrect dose administered by device [Unknown]
  - Product administration interrupted [Unknown]
  - Wrong technique in device usage process [Unknown]
  - Needle issue [Unknown]
